FAERS Safety Report 10203731 (Version 2)
Quarter: 2014Q2

REPORT INFORMATION
  Report Type: Spontaneous
  Country: JP (occurrence: None)
  Receive Date: 20140523
  Receipt Date: 20140611
  Transmission Date: 20141212
  Serious: Yes (Other)
  Sender: FDA-Public Use
  Company Number: SYM-2014-21162

PATIENT
  Age: 76 Year
  Sex: Male

DRUGS (2)
  1. VISUDYNE [Suspect]
     Indication: AGE-RELATED MACULAR DEGENERATION
     Route: 041
  2. LUCENTIS [Suspect]
     Indication: AGE-RELATED MACULAR DEGENERATION
     Route: 031

REACTIONS (5)
  - Choroidal neovascularisation [None]
  - Disease progression [None]
  - Retinal pigment epithelial tear [None]
  - Detachment of retinal pigment epithelium [None]
  - Polypoidal choroidal vasculopathy [None]
